FAERS Safety Report 9891744 (Version 18)
Quarter: 2016Q1

REPORT INFORMATION
  Report Type: Report from Study
  Country: CA (occurrence: CA)
  Receive Date: 20140212
  Receipt Date: 20160205
  Transmission Date: 20160526
  Serious: Yes (Death, Hospitalization, Other)
  Sender: FDA-Public Use
  Company Number: PHHY2012CA001897

PATIENT
  Age: 69 Year
  Sex: Female

DRUGS (8)
  1. COZAAR [Concomitant]
     Active Substance: LOSARTAN POTASSIUM
     Indication: PRODUCT USED FOR UNKNOWN INDICATION
     Dosage: 50 MG, QD
     Route: 065
  2. TRIAMZIDE [Concomitant]
     Indication: PRODUCT USED FOR UNKNOWN INDICATION
     Dosage: 1 DF, QD
     Route: 065
  3. ASA [Concomitant]
     Active Substance: ASPIRIN
     Indication: PRODUCT USED FOR UNKNOWN INDICATION
     Dosage: UNK UNK, QD
     Route: 065
  4. GLUCOPHAGE [Concomitant]
     Active Substance: METFORMIN HYDROCHLORIDE
     Indication: PRODUCT USED FOR UNKNOWN INDICATION
     Dosage: UNK UNK, TID
     Route: 065
  5. SANDOSTATIN LAR DEPOT [Suspect]
     Active Substance: OCTREOTIDE ACETATE
     Indication: NEUROENDOCRINE TUMOUR
     Dosage: 30 MG, QMO (EVERY 4 WEEKS)
     Route: 030
     Dates: start: 20080603, end: 20160107
  6. SYNTHROID [Concomitant]
     Active Substance: LEVOTHYROXINE SODIUM
     Indication: PRODUCT USED FOR UNKNOWN INDICATION
     Dosage: 1 DF, QD
     Route: 065
  7. SANDOSTATIN [Suspect]
     Active Substance: OCTREOTIDE ACETATE
     Indication: NEUROENDOCRINE TUMOUR
     Dosage: UNKNOWN TID FOR 3 WEEKS
     Route: 058
     Dates: start: 20080602, end: 200806
  8. CATAPRES [Concomitant]
     Active Substance: CLONIDINE HYDROCHLORIDE
     Indication: PRODUCT USED FOR UNKNOWN INDICATION
     Dosage: 1 DF, QD
     Route: 065

REACTIONS (31)
  - Angina pectoris [Unknown]
  - Throat tightness [Unknown]
  - Lacrimation increased [Unknown]
  - Migraine [Recovered/Resolved]
  - Dysuria [Recovering/Resolving]
  - Blood pressure increased [Unknown]
  - Sinusitis [Not Recovered/Not Resolved]
  - Discomfort [Unknown]
  - Nervousness [Unknown]
  - Nausea [Unknown]
  - Fatigue [Unknown]
  - Metastases to liver [Unknown]
  - Photophobia [Unknown]
  - Headache [Unknown]
  - Abdominal pain lower [Unknown]
  - Eye pain [Unknown]
  - Neck pain [Not Recovered/Not Resolved]
  - Malaise [Unknown]
  - Death [Fatal]
  - Heart rate decreased [Unknown]
  - Injection site pain [Unknown]
  - Blood pressure diastolic decreased [Unknown]
  - Pain in jaw [Unknown]
  - Increased upper airway secretion [Not Recovered/Not Resolved]
  - Stress [Unknown]
  - Back pain [Unknown]
  - Chest pain [Unknown]
  - Atrial fibrillation [Unknown]
  - Feeding disorder [Unknown]
  - Flank pain [Unknown]
  - Vomiting [Unknown]

NARRATIVE: CASE EVENT DATE: 20130622
